FAERS Safety Report 6451898-7 (Version None)
Quarter: 2009Q4

REPORT INFORMATION
  Report Type: 
  Country: None (occurrence: None)
  Receive Date: 20091123
  Receipt Date: 20091109
  Transmission Date: 20100525
  Serious: Yes (Death)
  Sender: FDA-Public Use
  Company Number: GB-MYLANLABS-2009S1018844

PATIENT
  Age: 32 Year
  Sex: Male

DRUGS (3)
  1. DIHYDROCODEINE BITARTRATE INJ [Suspect]
     Indication: DRUG USE FOR UNKNOWN INDICATION
  2. FENTANYL-100 [Suspect]
     Indication: PAIN
     Route: 062
  3. PROPOXYPHENE HCL CAP [Suspect]
     Indication: DRUG USE FOR UNKNOWN INDICATION

REACTIONS (6)
  - ACCIDENTAL OVERDOSE [None]
  - ACUTE CHEST SYNDROME [None]
  - DRUG INTERACTION [None]
  - OVERDOSE [None]
  - PRURITUS [None]
  - RESPIRATORY DEPRESSION [None]
